FAERS Safety Report 4499556-2 (Version None)
Quarter: 2004Q4

REPORT INFORMATION
  Report Type: 
  Country: None (occurrence: None)
  Receive Date: 20040928
  Receipt Date: 20040810
  Transmission Date: 20050328
  Serious: No
  Sender: FDA-Public Use
  Company Number: 04P-163-0270240-00

PATIENT
  Age: 57 Year
  Sex: Female

DRUGS (11)
  1. HUMIRA [Suspect]
     Indication: RHEUMATOID ARTHRITIS
     Dosage: 40 MG 1 IN 2 WK SUBCUTANEOUS
     Route: 058
     Dates: start: 20031001, end: 20040101
  2. METHOTREXATE [Concomitant]
  3. RANITIDINE HYDROCHLORIDE [Concomitant]
  4. PROVELLA-14 [Concomitant]
  5. VALACYCLOVIR HCL [Concomitant]
  6. ^DYAREC CR^ [Concomitant]
  7. ^MYCARTIS^ [Concomitant]
  8. ATORVASTATIN CALCIUM [Concomitant]
  9. VENLAFAXINE HYDROCHLORIDE [Concomitant]
  10. POTASSIUM CHLORIDE [Concomitant]
  11. FUROSEMIDE [Concomitant]

REACTIONS (2)
  - DRUG INEFFECTIVE [None]
  - INJECTION SITE BURNING [None]
